FAERS Safety Report 17510643 (Version 1)
Quarter: 2020Q1

REPORT INFORMATION
  Report Type: Spontaneous
  Country: US (occurrence: US)
  Receive Date: 20200306
  Receipt Date: 20200306
  Transmission Date: 20200409
  Serious: Yes (Other)
  Sender: FDA-Public Use
  Company Number: US-ASTRAZENECA-2020SE31240

PATIENT
  Sex: Male
  Weight: 118.4 kg

DRUGS (10)
  1. FENESTERIDE [Concomitant]
     Indication: PROSTATIC DISORDER
     Dosage: TWICE A DAY
  2. FUROSEMIDE. [Concomitant]
     Active Substance: FUROSEMIDE
     Indication: PROSTATIC DISORDER
     Dosage: DAILY
  3. BEVESPI AEROSPHERE [Suspect]
     Active Substance: FORMOTEROL FUMARATE\GLYCOPYRROLATE
     Indication: BRONCHITIS CHRONIC
     Dosage: 9MCG-4.8 MCG 2 PUFFS TWICE A DAY
     Route: 055
  4. PROAIR HFA [Concomitant]
     Active Substance: ALBUTEROL SULFATE
  5. FLONASE [Concomitant]
     Active Substance: FLUTICASONE PROPIONATE
     Indication: PROSTATIC DISORDER
     Dosage: GENERIC,TWO SPRAYS IN EACH NOSTRIL TWICE A DAY
  6. BEVESPI AEROSPHERE [Suspect]
     Active Substance: FORMOTEROL FUMARATE\GLYCOPYRROLATE
     Indication: CHRONIC OBSTRUCTIVE PULMONARY DISEASE
     Dosage: 9MCG-4.8 MCG 2 PUFFS TWICE A DAY
     Route: 055
  7. SYMBICORT [Suspect]
     Active Substance: BUDESONIDE\FORMOTEROL FUMARATE DIHYDRATE
     Indication: BRONCHITIS CHRONIC
     Dosage: 160-4.5 MCG TWO PUFFS TWICE A DAY
     Route: 055
  8. XANAX [Concomitant]
     Active Substance: ALPRAZOLAM
     Dosage: 1 MG 1-3 TIMES AS NEEDED
  9. KLORCON POTASSIUM [Concomitant]
     Indication: PROSTATIC DISORDER
     Dosage: TWICE A DAY
  10. SYMBICORT [Suspect]
     Active Substance: BUDESONIDE\FORMOTEROL FUMARATE DIHYDRATE
     Indication: CHRONIC OBSTRUCTIVE PULMONARY DISEASE
     Dosage: 160-4.5 MCG TWO PUFFS TWICE A DAY
     Route: 055

REACTIONS (5)
  - Cataract [Unknown]
  - Dyspnoea [Unknown]
  - Diplopia [Unknown]
  - Wrong technique in device usage process [Unknown]
  - Dry mouth [Unknown]
